FAERS Safety Report 4292255-1 (Version None)
Quarter: 2004Q1

REPORT INFORMATION
  Report Type: 
  Country: None (occurrence: None)
  Receive Date: 20040211
  Receipt Date: 20040130
  Transmission Date: 20041129
  Serious: Yes (Other)
  Sender: FDA-Public Use
  Company Number: GB-GLAXOSMITHKLINE-B0321594A

PATIENT
  Age: 66 Year
  Sex: Female
  Weight: 80 kg

DRUGS (5)
  1. AVANDIA [Suspect]
     Route: 048
     Dates: start: 20030605, end: 20040128
  2. LISINOPRIL [Concomitant]
     Indication: HYPERTENSION
     Dosage: 2.5MG PER DAY
     Route: 065
     Dates: start: 20020704
  3. GLICLAZIDE [Concomitant]
     Indication: DIABETES MELLITUS
     Dosage: 320MG PER DAY
     Route: 065
     Dates: start: 19980601
  4. ATORVASTATIN [Concomitant]
     Dosage: 80MG PER DAY
     Route: 065
     Dates: start: 19990601
  5. NABUMETONE [Concomitant]
     Indication: OSTEOARTHRITIS
     Dosage: 1000MG PER DAY
     Route: 065
     Dates: start: 19990401

REACTIONS (1)
  - PARAESTHESIA [None]
